FAERS Safety Report 13401525 (Version 1)
Quarter: 2017Q2

REPORT INFORMATION
  Report Type: Report from Study
  Country: US (occurrence: US)
  Receive Date: 20170404
  Receipt Date: 20170404
  Transmission Date: 20170830
  Serious: Yes (Other)
  Sender: FDA-Public Use
  Company Number: US-JNJFOC-20161008096

PATIENT
  Sex: Male

DRUGS (9)
  1. IMBRUVICA [Suspect]
     Active Substance: IBRUTINIB
     Indication: NON-HODGKIN^S LYMPHOMA
     Route: 048
     Dates: start: 20160308
  2. OCUVITE [Concomitant]
     Active Substance: VITAMINS
  3. NORVASC [Concomitant]
     Active Substance: AMLODIPINE BESYLATE
  4. ASPIRIN. [Concomitant]
     Active Substance: ASPIRIN
  5. VITAMINS NOS [Concomitant]
     Active Substance: VITAMINS
  6. HYTRIN [Concomitant]
     Active Substance: TERAZOSIN HYDROCHLORIDE
  7. IMBRUVICA [Suspect]
     Active Substance: IBRUTINIB
     Indication: HAEMATOLOGICAL MALIGNANCY
     Route: 048
     Dates: start: 20160308
  8. MAGNESIUM [Concomitant]
     Active Substance: MAGNESIUM
  9. LASIX [Concomitant]
     Active Substance: FUROSEMIDE

REACTIONS (2)
  - Muscular weakness [Not Recovered/Not Resolved]
  - Spinal column stenosis [Unknown]
